FAERS Safety Report 7879411-8 (Version None)
Quarter: 2011Q4

REPORT INFORMATION
  Report Type: 
  Country: None (occurrence: None)
  Receive Date: 20111101
  Receipt Date: 20111027
  Transmission Date: 20120403
  Serious: Yes (Other)
  Sender: FDA-Public Use
  Company Number: US-PFIZER INC-2011263237

PATIENT
  Sex: Male

DRUGS (1)
  1. EFFEXOR [Suspect]
     Dosage: UNK
     Dates: end: 20111027

REACTIONS (6)
  - HYPERTENSION [None]
  - BEDRIDDEN [None]
  - HYPOPNOEA [None]
  - PYREXIA [None]
  - INSOMNIA [None]
  - PALPITATIONS [None]
